FAERS Safety Report 20391289 (Version 1)
Quarter: 2022Q1

REPORT INFORMATION
  Report Type: Spontaneous
  Country: SE (occurrence: SE)
  Receive Date: 20220128
  Receipt Date: 20220128
  Transmission Date: 20220423
  Serious: Yes (Other)
  Sender: FDA-Public Use
  Company Number: SE-MPA-1617199860276

PATIENT
  Age: 57 Year
  Sex: Female

DRUGS (1)
  1. GALANTAMINE [Suspect]
     Active Substance: GALANTAMINE
     Indication: Dementia
     Dosage: 24 1X1, GALANTAMINE ACTAVIS 24 MG PROLONGED-RELEASE HARD CAPSULE, 24 MG, DEPOT CAPSULE, HARD
     Route: 048
     Dates: start: 20210205, end: 20210330

REACTIONS (2)
  - Urticaria [Not Recovered/Not Resolved]
  - Product substitution issue [Not Recovered/Not Resolved]

NARRATIVE: CASE EVENT DATE: 20210228
